FAERS Safety Report 11155086 (Version 1)
Quarter: 2015Q2

REPORT INFORMATION
  Report Type: Spontaneous
  Country: NL (occurrence: NL)
  Receive Date: 20150602
  Receipt Date: 20150602
  Transmission Date: 20150821
  Serious: Yes (Life-Threatening, Hospitalization, Other)
  Sender: FDA-Public Use
  Company Number: NL-SUN PHARMACEUTICAL INDUSTRIES LTD-2015RR-97738

PATIENT

DRUGS (3)
  1. PARACETAMOL [Suspect]
     Active Substance: ACETAMINOPHEN
     Indication: PRODUCT USED FOR UNKNOWN INDICATION
     Dosage: POSSIBLE DOSE 4000-6000 MG
     Route: 048
  2. LEVETIRACETAM. [Suspect]
     Active Substance: LEVETIRACETAM
     Indication: EPILEPSY
     Dosage: POSSIBLE DOSE 20000-27000 MG
     Route: 048
     Dates: start: 2010
  3. BACLOFEN. [Suspect]
     Active Substance: BACLOFEN
     Indication: PRODUCT USED FOR UNKNOWN INDICATION
     Dosage: MAXIMUM DOSE 200 MG
     Route: 048

REACTIONS (7)
  - Coma [Recovered/Resolved]
  - Vomiting [None]
  - Confusional state [None]
  - Intentional overdose [None]
  - Overdose [Recovered/Resolved]
  - Suicide attempt [Recovered/Resolved]
  - Atelectasis [None]
